FAERS Safety Report 8247297-8 (Version None)
Quarter: 2012Q1

REPORT INFORMATION
  Report Type: 
  Country: None (occurrence: None)
  Receive Date: 20120330
  Receipt Date: 20120316
  Transmission Date: 20120608
  Serious: Yes (Other)
  Sender: FDA-Public Use
  Company Number: US-ROCHE-791176

PATIENT
  Sex: Male
  Weight: 97.61 kg

DRUGS (3)
  1. MINOCIN [Concomitant]
  2. ACCUTANE [Suspect]
     Indication: ACNE
     Route: 065
     Dates: start: 19990901, end: 20000301
  3. ACCUTANE [Suspect]
     Dates: start: 20000601, end: 20001201

REACTIONS (8)
  - COLITIS ULCERATIVE [None]
  - VIRAL INFECTION [None]
  - DEPRESSION [None]
  - ACNE [None]
  - STRESS [None]
  - DRY SKIN [None]
  - SUICIDAL IDEATION [None]
  - INFLAMMATORY BOWEL DISEASE [None]
